FAERS Safety Report 21939863 (Version 1)
Quarter: 2023Q1

REPORT INFORMATION
  Report Type: Spontaneous
  Country: BR (occurrence: BR)
  Receive Date: 20230201
  Receipt Date: 20230201
  Transmission Date: 20230418
  Serious: No
  Sender: FDA-Public Use
  Company Number: BR-EXELIXIS-CABO-22049058

PATIENT
  Age: 77 Year
  Sex: Male
  Weight: 71 kg

DRUGS (1)
  1. CABOMETYX [Suspect]
     Active Substance: CABOZANTINIB S-MALATE
     Indication: Sarcomatoid carcinoma of the lung
     Dosage: 20MG OR 40 MG/ONCE PER DAY (NOT SPECIFIED)
     Route: 050
     Dates: start: 20200603, end: 20200629

REACTIONS (2)
  - Rash [Recovered/Resolved]
  - Off label use [Unknown]

NARRATIVE: CASE EVENT DATE: 20200604
